FAERS Safety Report 4666258-9 (Version None)
Quarter: 2005Q2

REPORT INFORMATION
  Report Type: 
  Country: None (occurrence: None)
  Receive Date: 20050518
  Receipt Date: 20050505
  Transmission Date: 20051028
  Serious: Yes (Other)
  Sender: FDA-Public Use
  Company Number: 2005071060

PATIENT
  Age: 70 Year
  Sex: Female
  Weight: 95.2554 kg

DRUGS (2)
  1. DILANTIN [Suspect]
     Indication: ILL-DEFINED DISORDER
     Dosage: ORAL
     Route: 048
     Dates: start: 19910101
  2. ASPIRIN [Concomitant]

REACTIONS (11)
  - ARTHRALGIA [None]
  - CONVULSION [None]
  - FALL [None]
  - HAEMORRHAGE [None]
  - HAND FRACTURE [None]
  - INCORRECT DOSE ADMINISTERED [None]
  - INJURY [None]
  - INSOMNIA [None]
  - OEDEMA PERIPHERAL [None]
  - PAIN [None]
  - PAIN IN EXTREMITY [None]
